FAERS Safety Report 25777968 (Version 1)
Quarter: 2025Q3

REPORT INFORMATION
  Report Type: Spontaneous
  Country: US (occurrence: None)
  Receive Date: 20250906
  Receipt Date: 20250906
  Transmission Date: 20251020
  Serious: Yes (Death, Life-Threatening, Hospitalization, Disabling, Other)
  Sender: FDA-CTU
  Company Number: None

PATIENT
  Age: 57 Year
  Sex: Male
  Weight: 75.6 kg

DRUGS (2)
  1. OZEMPIC [Suspect]
     Active Substance: SEMAGLUTIDE
  2. FENTANYL [Suspect]
     Active Substance: FENTANYL

REACTIONS (11)
  - Cerebrovascular accident [None]
  - Eye disorder [None]
  - Drug level above therapeutic [None]
  - Hernia [None]
  - Bone operation [None]
  - Weight decreased [None]
  - Spinal laminectomy [None]
  - Exostosis [None]
  - Headache [None]
  - Bursitis [None]
  - Calcinosis [None]

NARRATIVE: CASE EVENT DATE: 20200406
